FAERS Safety Report 23528108 (Version 1)
Quarter: 2024Q1

REPORT INFORMATION
  Report Type: Spontaneous
  Country: US (occurrence: US)
  Receive Date: 20240215
  Receipt Date: 20240215
  Transmission Date: 20240409
  Serious: No
  Sender: FDA-Public Use
  Company Number: US-GLENMARK PHARMACEUTICALS_2023GMK084158

PATIENT

DRUGS (1)
  1. TACROLIMUS [Suspect]
     Active Substance: TACROLIMUS
     Indication: Product used for unknown indication
     Dosage: UNK
     Route: 061
     Dates: start: 20230804

REACTIONS (3)
  - Sleep disorder due to a general medical condition [Unknown]
  - Application site discolouration [Unknown]
  - Application site pain [Unknown]

NARRATIVE: CASE EVENT DATE: 20230801
